FAERS Safety Report 5481168-5 (Version None)
Quarter: 2007Q4

REPORT INFORMATION
  Report Type: 
  Country: None (occurrence: None)
  Receive Date: 20071010
  Receipt Date: 20071005
  Transmission Date: 20080405
  Serious: Yes (Other)
  Sender: FDA-Public Use
  Company Number: PHEH2007US13218

PATIENT

DRUGS (1)
  1. TEKTURNA [Suspect]

REACTIONS (1)
  - SYSTOLIC HYPERTENSION [None]
